FAERS Safety Report 9301415 (Version 1)
Quarter: 2012Q4

REPORT INFORMATION
  Report Type: Spontaneous
  Country: PT (occurrence: None)
  Receive Date: 20121127
  Receipt Date: 20121127
  Transmission Date: 20130627
  Serious: Yes (Other)
  Sender: FDA-Public Use
  Company Number: NGX_01438_2012

PATIENT
  Age: 74 Year
  Sex: Female

DRUGS (3)
  1. QUTENZA (CAPSAICIN) PATCH (179 MG, 179 MG) [Suspect]
     Indication: POST HERPETIC NEURALGIA
     Route: 061
     Dates: start: 20121001, end: 20121001
  2. QUTENZA (CAPSAICIN) PATCH (179 MG, 179 MG) [Suspect]
     Indication: POST HERPETIC NEURALGIA
     Route: 061
     Dates: start: 20120709, end: 20120709
  3. CLEANSING GEL [Suspect]

REACTIONS (2)
  - Application site vesicles [None]
  - Wrong technique in drug usage process [None]
